FAERS Safety Report 6788237-8 (Version None)
Quarter: 2010Q2

REPORT INFORMATION
  Report Type: 
  Country: None (occurrence: None)
  Receive Date: 20100621
  Receipt Date: 20100617
  Transmission Date: 20101027
  Serious: Yes (Hospitalization, Disabling)
  Sender: FDA-Public Use
  Company Number: 1-22572182

PATIENT
  Age: 29 Year
  Sex: Female
  Weight: 61.2356 kg

DRUGS (2)
  1. AMPHETAMINE SALTS TABLETS 30MG [Suspect]
     Indication: ATTENTION DEFICIT/HYPERACTIVITY DISORDER
     Dosage: 60 - 90 MG, DAILY, ORAL
     Route: 048
     Dates: start: 20030301
  2. ADDERALL (AMPHETAMINE AND DEXTROAMPHETAMINE) [Concomitant]

REACTIONS (17)
  - DISTURBANCE IN ATTENTION [None]
  - DRUG EFFECT DECREASED [None]
  - DRUG HYPERSENSITIVITY [None]
  - DRUG TOLERANCE INCREASED [None]
  - DYSGEUSIA [None]
  - FOOD INTERACTION [None]
  - HALLUCINATION, AUDITORY [None]
  - HALLUCINATION, OLFACTORY [None]
  - INSOMNIA [None]
  - NEURALGIA [None]
  - PHARYNGEAL OEDEMA [None]
  - PRODUCT QUALITY ISSUE [None]
  - PRURITUS [None]
  - SOMNOLENCE [None]
  - THROAT IRRITATION [None]
  - TREMOR [None]
  - WRONG TECHNIQUE IN DRUG USAGE PROCESS [None]
